FAERS Safety Report 15254700 (Version 3)
Quarter: 2019Q1

REPORT INFORMATION
  Report Type: Spontaneous
  Country: US (occurrence: US)
  Receive Date: 20180808
  Receipt Date: 20190123
  Transmission Date: 20190417
  Serious: Yes (Other)
  Sender: FDA-Public Use
  Company Number: US-SA-2018SA211698

PATIENT
  Age: 50 Year
  Sex: Female
  Weight: 98 kg

DRUGS (13)
  1. DOCETAXEL. [Suspect]
     Active Substance: DOCETAXEL
     Indication: BREAST CANCER FEMALE
     Dosage: 75 MG, Q3W
     Route: 042
     Dates: start: 20140915, end: 20140915
  2. HYDROCHLOROTHIAZIDE. [Concomitant]
     Active Substance: HYDROCHLOROTHIAZIDE
     Dosage: UNK
     Route: 065
     Dates: start: 200101
  3. HERCEPTIN [Concomitant]
     Active Substance: TRASTUZUMAB
     Route: 065
  4. ELLENCE [Concomitant]
     Active Substance: EPIRUBICIN HYDROCHLORIDE
     Route: 065
  5. NEULASTA [Concomitant]
     Active Substance: PEGFILGRASTIM
     Dosage: 6 MG
     Route: 058
  6. CARVEDILOL. [Concomitant]
     Active Substance: CARVEDILOL
     Dosage: UNK
     Route: 065
     Dates: start: 200012
  7. TAXOL [Concomitant]
     Active Substance: PACLITAXEL
     Route: 065
  8. SERTRALINE [Concomitant]
     Active Substance: SERTRALINE HYDROCHLORIDE
     Dosage: UNK
     Route: 065
     Dates: start: 201204
  9. MIRTAZAPINE. [Concomitant]
     Active Substance: MIRTAZAPINE
     Dosage: UNK
     Route: 065
     Dates: start: 201204
  10. PARAPLATIN [Concomitant]
     Active Substance: CARBOPLATIN
     Route: 065
  11. DOCETAXEL. [Suspect]
     Active Substance: DOCETAXEL
     Dosage: 75 MG, Q3W
     Route: 042
     Dates: start: 20150112, end: 20150112
  12. ASPIRIN (E.C.) [Concomitant]
     Active Substance: ASPIRIN
     Dosage: UNK
     Route: 065
     Dates: start: 200101
  13. ROSUVASTATIN. [Concomitant]
     Active Substance: ROSUVASTATIN
     Dosage: UNK
     Route: 065
     Dates: start: 200012

REACTIONS (3)
  - Anxiety [Unknown]
  - Alopecia [Recovering/Resolving]
  - Emotional distress [Unknown]

NARRATIVE: CASE EVENT DATE: 20150731
